FAERS Safety Report 10620799 (Version 1)
Quarter: 2014Q4

REPORT INFORMATION
  Report Type: Spontaneous
  Country: US (occurrence: US)
  Receive Date: 20141202
  Receipt Date: 20141202
  Transmission Date: 20150529
  Serious: No
  Sender: FDA-Public Use
  Company Number: US-SA-2014SA132268

PATIENT
  Sex: Female

DRUGS (2)
  1. RENVELA [Suspect]
     Active Substance: SEVELAMER CARBONATE
     Indication: HYPERPHOSPHATAEMIA
     Dosage: WITH LARGEST MEAL
     Route: 048
     Dates: start: 201409
  2. RENVELA [Suspect]
     Active Substance: SEVELAMER CARBONATE
     Indication: HYPERPHOSPHATAEMIA
     Dosage: ONE TABLET THREE TIMES A DAY WITH MEALS
     Route: 048
     Dates: start: 201408, end: 201409

REACTIONS (2)
  - Treatment noncompliance [Unknown]
  - Drug administration error [Unknown]

NARRATIVE: CASE EVENT DATE: 201408
